FAERS Safety Report 14287060 (Version 1)
Quarter: 2017Q4

REPORT INFORMATION
  Report Type: Spontaneous
  Country: US (occurrence: US)
  Receive Date: 20171214
  Receipt Date: 20171214
  Transmission Date: 20180321
  Serious: No
  Sender: FDA-Public Use
  Company Number: US-ASTELLAS-2017US036101

PATIENT
  Sex: Male

DRUGS (1)
  1. TARCEVA [Suspect]
     Active Substance: ERLOTINIB HYDROCHLORIDE
     Indication: HEPATOBILIARY CANCER
     Route: 065
     Dates: start: 20170808

REACTIONS (2)
  - Ill-defined disorder [Not Recovered/Not Resolved]
  - Acne [Not Recovered/Not Resolved]
